FAERS Safety Report 17412084 (Version 2)
Quarter: 2022Q3

REPORT INFORMATION
  Report Type: Spontaneous
  Country: PL (occurrence: PL)
  Receive Date: 20200213
  Receipt Date: 20220722
  Transmission Date: 20221027
  Serious: Yes (Other)
  Sender: FDA-Public Use
  Company Number: PL-SUN PHARMACEUTICAL INDUSTRIES LTD-2020R1-235858

PATIENT
  Age: 22 Year
  Sex: Male

DRUGS (5)
  1. RISPERIDONE [Interacting]
     Active Substance: RISPERIDONE
     Indication: Schizophrenia
     Dosage: 6 MILLIGRAM, DAILY
     Route: 065
  2. CLOZAPINE [Interacting]
     Active Substance: CLOZAPINE
     Indication: Schizophrenia
     Dosage: 25 MILLIGRAM, DAILY
     Route: 065
  3. CLOZAPINE [Interacting]
     Active Substance: CLOZAPINE
     Dosage: 100 MILLIGRAM, DAILY
     Route: 065
  4. CLOZAPINE [Interacting]
     Active Substance: CLOZAPINE
     Dosage: 50 MILLIGRAM, DAILY
     Route: 065
  5. VALPROIC ACID [Interacting]
     Active Substance: VALPROIC ACID
     Indication: Product used for unknown indication
     Dosage: 1200 MILLIGRAM, DAILY
     Route: 065

REACTIONS (2)
  - Myocarditis [Recovering/Resolving]
  - Drug interaction [Unknown]
